FAERS Safety Report 20338996 (Version 1)
Quarter: 2022Q1

REPORT INFORMATION
  Report Type: Spontaneous
  Country: AU (occurrence: AU)
  Receive Date: 20220116
  Receipt Date: 20220116
  Transmission Date: 20220424
  Serious: Yes (Life-Threatening, Hospitalization)
  Sender: FDA-Public Use
  Company Number: None

PATIENT
  Age: 12 Year
  Sex: Female

DRUGS (3)
  1. ACETAMINOPHEN [Suspect]
     Active Substance: ACETAMINOPHEN
     Indication: Product used for unknown indication
     Dosage: 4-6 HOURLY THERAPEUTIC DOSES, ACCORDING TO THE RECOMMENDED DOSING SCHEDULE (TOTAL PARACETAMOL INTAKE
     Route: 065
  2. IBUPROFEN [Suspect]
     Active Substance: IBUPROFEN
     Indication: Product used for unknown indication
     Dosage: 4-6 HOURLY THERAPEUTIC DOSES
     Route: 065
  3. AMOXICILLIN [Suspect]
     Active Substance: AMOXICILLIN
     Indication: Product used for unknown indication
     Dosage: 4-6 HOURLY THERAPEUTIC DOSES
     Route: 065

REACTIONS (5)
  - Myocarditis [Unknown]
  - Acute kidney injury [Unknown]
  - Acute hepatic failure [Unknown]
  - Toxicity to various agents [Unknown]
  - Myositis [Unknown]
